FAERS Safety Report 7396694-1 (Version None)
Quarter: 2011Q2

REPORT INFORMATION
  Report Type: 
  Country: None (occurrence: None)
  Receive Date: 20110406
  Receipt Date: 20101215
  Transmission Date: 20111010
  Serious: Yes (Hospitalization)
  Sender: FDA-Public Use
  Company Number: FR-BAYER-201046174GPV

PATIENT
  Sex: Male
  Weight: 80 kg

DRUGS (16)
  1. REPAGLINIDE [Concomitant]
     Indication: DIABETES MELLITUS
     Dosage: 4 MG, TID
     Dates: start: 20070101
  2. METFORMIN HYDROCHLORIDE [Concomitant]
     Indication: DIABETES MELLITUS
     Dosage: 850 DF, TID
     Dates: start: 20000101
  3. LANSOPRAZOLE [Concomitant]
     Indication: DYSPEPSIA
     Dosage: 30 MG, QD
     Dates: start: 20100101
  4. PANADEINE CO [Concomitant]
     Indication: BACK PAIN
     Dosage: UNK UNK, PRN
     Dates: start: 20100529, end: 20100822
  5. ACETYLSALICYLATE LYSINE [Concomitant]
     Indication: BACK PAIN
     Dosage: 75 MG, QD
     Dates: start: 20100101
  6. ISRADIPINE [Concomitant]
     Indication: HYPERTENSION
     Dosage: 5 DF (DAILY DOSE), ,
     Dates: start: 20100521
  7. OSINEX [Concomitant]
     Indication: PROPHYLAXIS
     Dosage: 1 DF, BID
     Dates: start: 20100520
  8. ISOPHANE INSULIN [Concomitant]
     Indication: DIABETES MELLITUS
     Dosage: 29 IU, BID
     Dates: end: 20100602
  9. SORAFENIB (RAF KINASE INHIBITOR) [Suspect]
     Indication: HEPATIC NEOPLASM MALIGNANT
     Route: 048
     Dates: start: 20100520, end: 20100926
  10. SORAFENIB (RAF KINASE INHIBITOR) [Suspect]
     Dosage: 400 MG, BID
     Route: 048
     Dates: start: 20101018, end: 20101025
  11. ULTRACET [Concomitant]
     Indication: BACK PAIN
     Dosage: 37.5 MG, BID
     Dates: start: 20100823, end: 20101003
  12. PRAVASTATIN SODIUM [Concomitant]
     Indication: DYSLIPIDAEMIA
     Dosage: 40 MG, QD
     Dates: start: 20000101
  13. LOPERAMIDE HYDROCHLORIDE [Concomitant]
     Indication: DIARRHOEA
     Dosage: UNK UNK, PRN
     Dates: start: 20100527
  14. LOPERAMIDE HYDROCHLORIDE [Concomitant]
     Dosage: 2 PILLS
     Dates: start: 20100602
  15. LINIFANIB (NOT ADMINISTERED) [Suspect]
     Indication: HEPATIC NEOPLASM MALIGNANT
     Dosage: STUDY MED NOT GIVEN
  16. ISOPHANE INSULIN [Concomitant]
     Dosage: 25 IU, BID
     Dates: start: 20100603, end: 20101001

REACTIONS (1)
  - HEPATIC ENCEPHALOPATHY [None]
